FAERS Safety Report 15866533 (Version 2)
Quarter: 2019Q1

REPORT INFORMATION
  Report Type: Spontaneous
  Country: US (occurrence: US)
  Receive Date: 20190125
  Receipt Date: 20190306
  Transmission Date: 20190417
  Serious: No
  Sender: FDA-Public Use
  Company Number: US-PFIZER INC-2019027415

PATIENT
  Age: 32 Year
  Sex: Male

DRUGS (2)
  1. MEXILETINE [Concomitant]
     Active Substance: MEXILETINE
     Dosage: 150 MG, 2X/DAY
     Route: 048
     Dates: start: 2011
  2. GABAPENTIN. [Suspect]
     Active Substance: GABAPENTIN
     Indication: NEUROPATHY PERIPHERAL
     Dosage: UNKNOWN BUT WAS AT MAXIMUM.
     Dates: start: 2011, end: 2016

REACTIONS (3)
  - Product use in unapproved indication [Recovered/Resolved]
  - Memory impairment [Unknown]
  - Disease recurrence [Unknown]

NARRATIVE: CASE EVENT DATE: 2011
